FAERS Safety Report 8555664-8 (Version None)
Quarter: 2012Q3

REPORT INFORMATION
  Report Type: 
  Country: None (occurrence: None)
  Receive Date: 20120801
  Receipt Date: 20120725
  Transmission Date: 20120928
  Serious: Yes (Hospitalization)
  Sender: FDA-Public Use
  Company Number: HU-AMGEN-HUNSP2012040767

PATIENT
  Age: 57 Year
  Sex: Male
  Weight: 72 kg

DRUGS (7)
  1. DALTEPARIN SODIUM [Concomitant]
     Indication: PROPHYLAXIS
     Dosage: 5000 IU, QD
     Route: 058
     Dates: start: 20100901
  2. REMERON [Concomitant]
     Dosage: 30 MG, QD
  3. VECTIBIX [Suspect]
     Indication: COLORECTAL CANCER
     Dosage: 430 MG, ONE TIME DOSE
     Route: 042
     Dates: start: 20120509, end: 20120509
  4. VECTIBIX [Suspect]
     Indication: METASTASES TO LIVER
  5. FRAGMIN [Concomitant]
     Dosage: 0.2 ML, QD
  6. VECTIBIX [Suspect]
     Indication: METASTASES TO LUNG
  7. ANALGESICS [Concomitant]

REACTIONS (4)
  - RASH PUSTULAR [None]
  - SEPSIS [None]
  - ACNE [None]
  - DIARRHOEA [None]
